FAERS Safety Report 9390974 (Version 1)
Quarter: 2013Q3

REPORT INFORMATION
  Report Type: Spontaneous
  Country: US (occurrence: US)
  Receive Date: 20130709
  Receipt Date: 20130709
  Transmission Date: 20140515
  Serious: Yes (Other)
  Sender: FDA-Public Use
  Company Number: US-JNJFOC-20130616675

PATIENT
  Age: 65 Year
  Sex: Male
  Weight: 122.47 kg

DRUGS (1)
  1. LEVAQUIN [Suspect]
     Indication: INFECTION
     Route: 048
     Dates: start: 20130612, end: 20130619

REACTIONS (6)
  - Loss of consciousness [Recovered/Resolved]
  - Convulsion [Unknown]
  - Insomnia [Unknown]
  - Dizziness [Recovered/Resolved]
  - Abdominal pain upper [Recovered/Resolved]
  - Burning sensation [Not Recovered/Not Resolved]
